FAERS Safety Report 15481729 (Version 1)
Quarter: 2018Q4

REPORT INFORMATION
  Report Type: Other
  Country: TR (occurrence: TR)
  Receive Date: 20181010
  Receipt Date: 20181010
  Transmission Date: 20190205
  Serious: Yes (Hospitalization, Other)
  Sender: FDA-Public Use
  Company Number: TR-DEXPHARM-20180770

PATIENT
  Age: 59 Year
  Sex: Male

DRUGS (6)
  1. METHOTREXATE. [Suspect]
     Active Substance: METHOTREXATE
  2. LANSOPRAZOLE. [Interacting]
     Active Substance: LANSOPRAZOLE
  3. FOLIC ACID. [Concomitant]
     Active Substance: FOLIC ACID
  4. LEFLUNAMIDE [Interacting]
     Active Substance: LEFLUNOMIDE
  5. MONTELUKAST [Concomitant]
     Active Substance: MONTELUKAST SODIUM
  6. PREDNISONE. [Concomitant]
     Active Substance: PREDNISONE

REACTIONS (2)
  - Drug interaction [Unknown]
  - Toxicity to various agents [Unknown]
